FAERS Safety Report 16909127 (Version 1)
Quarter: 2019Q4

REPORT INFORMATION
  Report Type: Spontaneous
  Country: US (occurrence: US)
  Receive Date: 20190820
  Receipt Date: 20190820
  Transmission Date: 20200122
  Serious: Yes (Hospitalization)
  Sender: FDA-Public Use
  Company Number: None

PATIENT
  Age: 42 Year
  Sex: Male
  Weight: 74.17 kg

DRUGS (4)
  1. CHEMORADIATION (RADIATION THERAPY) [Suspect]
     Active Substance: RADIATION THERAPY
     Indication: PANCREATIC CARCINOMA
     Dosage: ?          OTHER FREQUENCY:5DAYWEEK; EXTERNAL BEAM?
     Route: 042
     Dates: start: 20190522, end: 20190626
  2. GEMCITABINE. [Suspect]
     Active Substance: GEMCITABINE
     Dosage: ?          OTHER FREQUENCY:28DAYCYCLE;?
     Route: 042
     Dates: start: 20190311, end: 20190429
  3. NAB-PACLITAXEL [Suspect]
     Active Substance: PACLITAXEL
     Indication: PANCREATIC CARCINOMA
     Dosage: ?          OTHER FREQUENCY:28DAYCYCLE; IV?
     Route: 042
     Dates: start: 20190322, end: 20190429
  4. 5-FU [Suspect]
     Active Substance: FLUOROURACIL
     Dosage: 5 DAYS A WEEK  IV PUMP
     Dates: start: 20190522, end: 20190626

REACTIONS (4)
  - Procedural nausea [None]
  - Chills [None]
  - Procedural vomiting [None]
  - Hypophagia [None]

NARRATIVE: CASE EVENT DATE: 20190809
